FAERS Safety Report 6816096-3 (Version None)
Quarter: 2010Q3

REPORT INFORMATION
  Report Type: 
  Country: None (occurrence: None)
  Receive Date: 20100705
  Receipt Date: 20100623
  Transmission Date: 20110219
  Serious: No
  Sender: FDA-Public Use
  Company Number: 2010BI005428

PATIENT
  Sex: Female

DRUGS (2)
  1. TYSABRI [Suspect]
     Indication: MULTIPLE SCLEROSIS
     Route: 042
     Dates: start: 20090506
  2. GABAPENTIN [Concomitant]
     Indication: NEURALGIA

REACTIONS (14)
  - DIARRHOEA [None]
  - DISBACTERIOSIS [None]
  - DISSOCIATION [None]
  - DRUG EFFECT DECREASED [None]
  - EYELID PTOSIS [None]
  - FATIGUE [None]
  - FLATULENCE [None]
  - GOITRE [None]
  - HAEMORRHOIDS [None]
  - HEADACHE [None]
  - MIGRAINE [None]
  - MOOD ALTERED [None]
  - PARANOIA [None]
  - STRESS [None]
